FAERS Safety Report 11024257 (Version 1)
Quarter: 2015Q2

REPORT INFORMATION
  Report Type: Spontaneous
  Country: SE (occurrence: SE)
  Receive Date: 20150414
  Receipt Date: 20150414
  Transmission Date: 20150821
  Serious: Yes (Hospitalization)
  Sender: FDA-Public Use
  Company Number: SE-ROCHE-1563245

PATIENT
  Age: 23 Year
  Sex: Male

DRUGS (1)
  1. XOLAIR [Suspect]
     Active Substance: OMALIZUMAB
     Indication: URTICARIA
     Route: 058

REACTIONS (4)
  - Anxiety [Unknown]
  - Hyperventilation [Unknown]
  - Pruritus [Unknown]
  - Skin reaction [Unknown]

NARRATIVE: CASE EVENT DATE: 20150311
